FAERS Safety Report 5340569-6 (Version None)
Quarter: 2007Q2

REPORT INFORMATION
  Report Type: 
  Country: None (occurrence: None)
  Receive Date: 20070405
  Receipt Date: 20070126
  Transmission Date: 20071010
  Serious: No
  Sender: FDA-Public Use
  Company Number: US200701005511

PATIENT
  Age: 73 Year
  Sex: Female

DRUGS (6)
  1. CYMBALTA [Suspect]
     Indication: DEPRESSION
     Dosage: 30 MG, DAILY (1/D), ORAL
     Route: 048
     Dates: start: 20070123
  2. NORVASC [Concomitant]
  3. POTASSIUM (POTASSIUM) [Concomitant]
  4. XANAX [Concomitant]
  5. PROTONIX [Concomitant]
  6. DARVOCET [Concomitant]

REACTIONS (6)
  - FEELING ABNORMAL [None]
  - HEADACHE [None]
  - INSOMNIA [None]
  - MALAISE [None]
  - POLLAKIURIA [None]
  - THINKING ABNORMAL [None]
